FAERS Safety Report 8112800 (Version 2)
Quarter: 2013Q2

REPORT INFORMATION
  Report Type: Report from Study
  Country: US (occurrence: US)
  Receive Date: 20110830
  Receipt Date: 20130509
  Transmission Date: 20140414
  Serious: Yes (Other)
  Sender: FDA-Public Use
  Company Number: PHHY2011US21289

PATIENT
  Age: 41 Year
  Sex: Female

DRUGS (10)
  1. GILENYA [Suspect]
     Indication: RELAPSING-REMITTING MULTIPLE SCLEROSIS
     Dosage: 0.5 MG, QD
     Route: 048
     Dates: start: 20101206
  2. GILENYA [Suspect]
     Dosage: 0.5 MG, QD
     Route: 048
     Dates: start: 201301
  3. DETROL LA [Concomitant]
     Dosage: 2 MG, UNK
  4. BACLOFEN [Concomitant]
     Dosage: 10 MG, UNK
  5. AMBIEN [Concomitant]
     Dosage: 10 MG, UNK
  6. CELEXA [Concomitant]
     Dosage: 20 MG, UNK
  7. MULTI-VIT [Concomitant]
  8. VITAMIN D [Concomitant]
     Dosage: 1000 U, UNK
  9. MAGNESIUM [Concomitant]
     Dosage: 300 MG, UNK
  10. CRANBERRY BERCO [Concomitant]

REACTIONS (5)
  - Multiple sclerosis relapse [Not Recovered/Not Resolved]
  - Muscular weakness [Unknown]
  - Fatigue [Unknown]
  - Peroneal nerve palsy [Unknown]
  - Lymphocyte count decreased [Unknown]
